FAERS Safety Report 17396167 (Version 1)
Quarter: 2020Q1

REPORT INFORMATION
  Report Type: Spontaneous
  Country: JP (occurrence: JP)
  Receive Date: 20200210
  Receipt Date: 20200210
  Transmission Date: 20200409
  Serious: Yes (Other)
  Sender: FDA-Public Use
  Company Number: JP-PFIZER INC-2020045093

PATIENT

DRUGS (2)
  1. METHOTREXATE. [Suspect]
     Active Substance: METHOTREXATE
     Indication: SOFT TISSUE NEOPLASM
  2. METHOTREXATE. [Suspect]
     Active Substance: METHOTREXATE
     Indication: BONE NEOPLASM
     Dosage: UNK (5G PER BODY SURFACE AREA)

REACTIONS (1)
  - Drug level increased [Unknown]
